FAERS Safety Report 17702090 (Version 1)
Quarter: 2020Q2

REPORT INFORMATION
  Report Type: Spontaneous
  Country: US (occurrence: US)
  Receive Date: 20200424
  Receipt Date: 20200424
  Transmission Date: 20200714
  Serious: No
  Sender: FDA-Public Use
  Company Number: US-AMGEN-USASP2020065913

PATIENT
  Age: 63 Year
  Sex: Male

DRUGS (9)
  1. KYPROLIS [Suspect]
     Active Substance: CARFILZOMIB
     Dosage: 56 MILLIGRAM/SQ. METER, CYCLE 1 DAY 8
     Route: 065
     Dates: start: 20200219
  2. LISINOPRIL. [Concomitant]
     Active Substance: LISINOPRIL
     Indication: BLOOD PRESSURE ABNORMAL
     Dosage: 5 MILLIGRAM, QD
  3. DARZALEX [Suspect]
     Active Substance: DARATUMUMAB
     Dosage: 1500 MILLIGRAM, DAY 15 OF FIRST CYCLE AND WEEKLY THEREAFTER
     Route: 065
     Dates: start: 20200219, end: 202003
  4. NIFEDIPINE. [Concomitant]
     Active Substance: NIFEDIPINE
     Indication: BLOOD PRESSURE ABNORMAL
     Dosage: 90 MILLIGRAM
  5. KYPROLIS [Suspect]
     Active Substance: CARFILZOMIB
     Indication: PLASMA CELL MYELOMA
     Dosage: 20 MILLIGRAM/SQ. METER, DAY 1 OF CYCLE 1
     Route: 065
     Dates: start: 20200205, end: 20200205
  6. DARZALEX [Suspect]
     Active Substance: DARATUMUMAB
     Dosage: 1500 MILLIGRAM, EVERY OTHER WEEK
     Route: 065
     Dates: start: 20200402
  7. KYPROLIS [Suspect]
     Active Substance: CARFILZOMIB
     Dosage: 70 MILLIGRAM/SQ. METER, DAY 15 OF CYCLE 1 AND ON DAS 1, 8 AND 15 FOR SUBSEQUENT CYCLES
     Route: 065
     Dates: start: 20200219
  8. ATENOLOL. [Concomitant]
     Active Substance: ATENOLOL
     Indication: BLOOD PRESSURE ABNORMAL
     Dosage: 25 MILLIGRAM, QD
  9. DARZALEX [Suspect]
     Active Substance: DARATUMUMAB
     Indication: PLASMA CELL MYELOMA
     Dosage: 686 MILLIGRAM, DAY 1 AND 2 OF FIRST CYCLE
     Route: 065
     Dates: start: 20200205, end: 20200206

REACTIONS (2)
  - Off label use [Unknown]
  - Blood pressure increased [Unknown]

NARRATIVE: CASE EVENT DATE: 20200205
